FAERS Safety Report 4600670-9 (Version None)
Quarter: 2005Q1

REPORT INFORMATION
  Report Type: 
  Country: None (occurrence: None)
  Receive Date: 20050127
  Receipt Date: 20041103
  Transmission Date: 20050727
  Serious: No
  Sender: FDA-Public Use
  Company Number: USA041183452

PATIENT
  Age: 40 Year
  Sex: Female

DRUGS (3)
  1. STRATTERA [Suspect]
     Dosage: 25 MG/1 IN THE MORNING
     Dates: start: 20040918, end: 20040929
  2. WELLBUTRIN [Concomitant]
  3. KLONOPIN [Concomitant]

REACTIONS (2)
  - HYPERTHYROIDISM [None]
  - INSOMNIA [None]
